FAERS Safety Report 11249595 (Version 1)
Quarter: 2015Q3

REPORT INFORMATION
  Report Type: Spontaneous
  Country: US (occurrence: US)
  Receive Date: 20150708
  Receipt Date: 20150708
  Transmission Date: 20151125
  Serious: Yes (Other)
  Sender: FDA-Public Use
  Company Number: US-ELI_LILLY_AND_COMPANY-US201009006114

PATIENT
  Age: 86 Year
  Sex: Male

DRUGS (3)
  1. FOLIC ACID. [Concomitant]
     Active Substance: FOLIC ACID
  2. ALIMTA [Suspect]
     Active Substance: PEMETREXED DISODIUM
     Indication: LYMPHOMA
     Dosage: 500 MG, EVERY 2 WEEKS
  3. VITAMIN B12 [Concomitant]
     Active Substance: CYANOCOBALAMIN

REACTIONS (2)
  - Pneumonitis [Recovered/Resolved]
  - Off label use [Recovered/Resolved]
